FAERS Safety Report 16320666 (Version 1)
Quarter: 2019Q2

REPORT INFORMATION
  Report Type: Spontaneous
  Country: FR (occurrence: FR)
  Receive Date: 20190516
  Receipt Date: 20190516
  Transmission Date: 20190711
  Serious: Yes (Hospitalization, Other)
  Sender: FDA-Public Use
  Company Number: FR-MYLANLABS-2019M1045644

PATIENT
  Age: 57 Year
  Sex: Female

DRUGS (3)
  1. EFFERALGAN [Concomitant]
     Active Substance: ACETAMINOPHEN
     Indication: PRODUCT USED FOR UNKNOWN INDICATION
     Dosage: UNK
  2. IBUPROFEN. [Suspect]
     Active Substance: IBUPROFEN
     Indication: PRODUCT USED FOR UNKNOWN INDICATION
     Dosage: UNK UNK, TID
     Route: 065
     Dates: start: 2018, end: 2018
  3. AMOXICILLINE/ACIDE CLAVULANIQUE BIOGARAN [Suspect]
     Active Substance: AMOXICILLIN\CLAVULANIC ACID
     Indication: PRODUCT USED FOR UNKNOWN INDICATION
     Dosage: 1 G, TID
     Dates: start: 201803

REACTIONS (8)
  - Apallic syndrome [Unknown]
  - Product substitution issue [Unknown]
  - Cardiac arrest [Unknown]
  - Coma [Unknown]
  - Painful respiration [Unknown]
  - Angioedema [Unknown]
  - Speech disorder [Unknown]
  - Hypersensitivity [Unknown]

NARRATIVE: CASE EVENT DATE: 2018
